FAERS Safety Report 5224753-8 (Version None)
Quarter: 2007Q1

REPORT INFORMATION
  Report Type: 
  Country: None (occurrence: None)
  Receive Date: 20070129
  Receipt Date: 20070129
  Transmission Date: 20070707
  Serious: No
  Sender: FDA-Public Use
  Company Number: None

PATIENT
  Sex: Male

DRUGS (1)
  1. MESALAMINE [Suspect]
     Indication: COLITIS ULCERATIVE
     Dosage: USE ONE ENEMA RECTALLY AT BEDTIME NIGHTLY
     Route: 054
     Dates: start: 20041201

REACTIONS (5)
  - COLITIS [None]
  - DISEASE RECURRENCE [None]
  - INCORRECT DOSE ADMINISTERED [None]
  - PHARMACEUTICAL PRODUCT COMPLAINT [None]
  - POOR QUALITY DRUG ADMINISTERED [None]
